FAERS Safety Report 9419113 (Version 3)
Quarter: 2013Q3

REPORT INFORMATION
  Report Type: Spontaneous
  Country: US (occurrence: US)
  Receive Date: 20130725
  Receipt Date: 20130913
  Transmission Date: 20140515
  Serious: Yes (Death, Hospitalization)
  Sender: FDA-Public Use
  Company Number: US-ASTELLAS-2013US007780

PATIENT
  Age: 58 Year
  Sex: Male
  Weight: 89 kg

DRUGS (16)
  1. XTANDI [Suspect]
     Indication: PROSTATE CANCER
     Dosage: 160 MG, UID/QD
     Route: 048
     Dates: start: 20130322, end: 20130715
  2. XTANDI [Suspect]
     Dosage: 120 MG, DOSES
     Route: 048
  3. LEUPROLIDE [Concomitant]
     Indication: PRODUCT USED FOR UNKNOWN INDICATION
     Dosage: UNK
     Route: 058
  4. ATIVAN [Concomitant]
     Indication: PRODUCT USED FOR UNKNOWN INDICATION
     Dosage: 0.5 MG, BID
     Route: 048
  5. ATIVAN [Concomitant]
     Dosage: 1 MG, UID/QD
     Route: 048
  6. MAGNESIUM HYDROXIDE [Concomitant]
     Indication: PRODUCT USED FOR UNKNOWN INDICATION
     Dosage: 15-30 ML
     Route: 048
  7. MEGACE [Concomitant]
     Indication: PRODUCT USED FOR UNKNOWN INDICATION
     Dosage: 400 MG, UID/QD
     Route: 048
  8. TOPROL [Concomitant]
     Indication: PRODUCT USED FOR UNKNOWN INDICATION
     Dosage: 100 MG, UID/QD
     Route: 048
  9. MS CONTIN [Concomitant]
     Indication: PRODUCT USED FOR UNKNOWN INDICATION
     Dosage: 15 MG, BID
     Route: 048
  10. MS CONTIN [Concomitant]
     Dosage: 30 MG, BID
     Route: 048
  11. ZOFRAN                             /00955301/ [Concomitant]
     Indication: PRODUCT USED FOR UNKNOWN INDICATION
     Dosage: 8 MG, Q12 HOURS
     Route: 048
  12. SENNOSIDES A+B [Concomitant]
     Indication: PRODUCT USED FOR UNKNOWN INDICATION
     Dosage: 1 DF, BID
     Route: 048
  13. ZOMETA [Concomitant]
     Indication: PRODUCT USED FOR UNKNOWN INDICATION
     Dosage: UNK
     Route: 042
  14. ZOLPIDEM [Concomitant]
     Indication: SLEEP DISORDER
     Dosage: 5 MG, PRN. AT NIGHT.
     Route: 048
  15. DECADRON                           /00016001/ [Concomitant]
     Indication: PRODUCT USED FOR UNKNOWN INDICATION
     Dosage: 1 MG, BID, WITH MEALS
     Route: 048
  16. MORPHINE [Concomitant]
     Indication: PAIN
     Dosage: 10 MG, PRN
     Route: 048

REACTIONS (11)
  - Cerebrovascular accident [Not Recovered/Not Resolved]
  - Hyponatraemia [Recovering/Resolving]
  - Pneumocystis jirovecii pneumonia [Not Recovered/Not Resolved]
  - Local swelling [Not Recovered/Not Resolved]
  - Anaemia [Not Recovered/Not Resolved]
  - Thrombocytopenia [Not Recovered/Not Resolved]
  - Pain [Unknown]
  - Pleural effusion [Not Recovered/Not Resolved]
  - Dyspnoea [Not Recovered/Not Resolved]
  - Metastases to bone [Not Recovered/Not Resolved]
  - Malignant neoplasm progression [Fatal]
